FAERS Safety Report 23854194 (Version 1)
Quarter: 2024Q2

REPORT INFORMATION
  Report Type: Spontaneous
  Country: US (occurrence: US)
  Receive Date: 20240514
  Receipt Date: 20240514
  Transmission Date: 20240716
  Serious: Yes (Other)
  Sender: FDA-Public Use
  Company Number: US-SA-2024SA143397

PATIENT
  Age: 80 Year
  Sex: Male

DRUGS (2)
  1. DUPILUMAB [Suspect]
     Active Substance: DUPILUMAB
     Indication: Dermatitis atopic
     Dosage: 300 MG, QOW
  2. ACYCLOVIR [Concomitant]
     Active Substance: ACYCLOVIR
     Indication: Ophthalmic herpes simplex
     Dosage: 400 MG, BID

REACTIONS (10)
  - Transplant failure [Recovered/Resolved]
  - Corneal neovascularisation [Recovered/Resolved]
  - Corneal opacity [Recovered/Resolved]
  - Ulcerative keratitis [Recovered/Resolved]
  - Eye pain [Recovered/Resolved]
  - Eye swelling [Recovered/Resolved]
  - Vision blurred [Recovered/Resolved]
  - Photophobia [Recovered/Resolved]
  - Eyelid oedema [Recovered/Resolved]
  - Conjunctival hyperaemia [Recovered/Resolved]
